FAERS Safety Report 9858814 (Version 1)
Quarter: 2014Q1

REPORT INFORMATION
  Report Type: Spontaneous
  Country: US (occurrence: None)
  Receive Date: 20140130
  Receipt Date: 20140130
  Transmission Date: 20141002
  Serious: No
  Sender: FDA-Public Use
  Company Number: None

PATIENT
  Age: 56 Year
  Sex: Male
  Weight: 86.4 kg

DRUGS (1)
  1. RIFAPENTINE [Suspect]
     Indication: TUBERCULOSIS
     Route: 048
     Dates: start: 20121015, end: 20121105

REACTIONS (3)
  - Nausea [None]
  - Vomiting [None]
  - Alanine aminotransferase increased [None]
